FAERS Safety Report 4813395-1 (Version None)
Quarter: 2005Q4

REPORT INFORMATION
  Report Type: 
  Country: None (occurrence: None)
  Receive Date: 20051026
  Receipt Date: 20051019
  Transmission Date: 20060501
  Serious: Yes (Other)
  Sender: FDA-Public Use
  Company Number: USA0509108728

PATIENT
  Age: 12 Year
  Sex: Male
  Weight: 69 kg

DRUGS (1)
  1. STRATTERA [Suspect]
     Indication: ATTENTION DEFICIT/HYPERACTIVITY DISORDER
     Dosage: 43 MG DAY
     Dates: start: 20040818, end: 20050418

REACTIONS (2)
  - HEPATIC STEATOSIS [None]
  - SCAR [None]
